FAERS Safety Report 8518365-8 (Version None)
Quarter: 2012Q3

REPORT INFORMATION
  Report Type: 
  Country: None (occurrence: None)
  Receive Date: 20120718
  Receipt Date: 20120709
  Transmission Date: 20120928
  Serious: Yes (Other)
  Sender: FDA-Public Use
  Company Number: US-ABBOTT-12P-163-0937837-00

PATIENT
  Sex: Female
  Weight: 72.64 kg

DRUGS (4)
  1. HUMIRA [Suspect]
     Indication: RHEUMATOID ARTHRITIS
     Route: 058
     Dates: start: 20080823, end: 20120423
  2. HUMIRA [Suspect]
  3. VITAMIN D [Concomitant]
     Indication: VITAMIN SUPPLEMENTATION
  4. METHOTREXATE [Concomitant]
     Indication: RHEUMATOID ARTHRITIS
     Dosage: 10 TAB BY MOUTH ONCE EVERY WEEK/SATURDAY
     Dates: end: 20120423

REACTIONS (6)
  - ARTHRITIS [None]
  - BREAST CANCER IN SITU [None]
  - BREAST MASS [None]
  - BREAST CANCER [None]
  - NUCLEAR MAGNETIC RESONANCE IMAGING BREAST ABNORMAL [None]
  - MAMMARY DUCT ECTASIA [None]
